FAERS Safety Report 8320685-7 (Version None)
Quarter: 2012Q1

REPORT INFORMATION
  Report Type: 
  Country: None (occurrence: None)
  Receive Date: 20120315
  Receipt Date: 20110314
  Transmission Date: 20120608
  Serious: No
  Sender: FDA-Public Use
  Company Number: PHHY2011US08501

PATIENT
  Age: 42 Year
  Sex: Female
  Weight: 65.8 kg

DRUGS (10)
  1. ZANAFLEX [Concomitant]
  2. MORPHINE [Concomitant]
  3. GILENYA [Suspect]
     Indication: MULTIPLE SCLEROSIS
     Dosage: 0.5 MG, QD, ORAL
     Route: 048
     Dates: start: 20110114
  4. SERTRALINE HYDROCHLORIDE [Concomitant]
  5. KLONOPIN [Concomitant]
  6. GABAPENTIN [Concomitant]
  7. TRAZODONE HCL [Concomitant]
  8. LEVOTHYROXINE SODIUM [Concomitant]
  9. SIMCOR (NICOTINIC ACID/SIMVASTATIN) (NICOTINIC ACID/SIMVASTATIN) [Concomitant]
  10. ALBUTEROL [Concomitant]

REACTIONS (8)
  - ASTHENIA [None]
  - OLIGOMENORRHOEA [None]
  - CHEST DISCOMFORT [None]
  - LIMB DISCOMFORT [None]
  - COUGH [None]
  - HEADACHE [None]
  - FOOT DEFORMITY [None]
  - DIZZINESS [None]
